FAERS Safety Report 5199615-5 (Version None)
Quarter: 2007Q1

REPORT INFORMATION
  Report Type: 
  Country: None (occurrence: None)
  Receive Date: 20070102
  Receipt Date: 20070102
  Transmission Date: 20070707
  Serious: Yes (Hospitalization)
  Sender: FDA-Public Use
  Company Number: None

PATIENT
  Sex: Female
  Weight: 69.4003 kg

DRUGS (3)
  1. TRASYLOL [Suspect]
     Indication: HAEMORRHAGE
     Dosage: 2,000,000 UNITS BOLUS IV BOLUS
     Route: 040
     Dates: start: 20061213, end: 20061214
  2. TRASYLOL [Suspect]
     Dosage: 6,000,000 UNITS DURING SURGERY IV DRIP
     Route: 041
  3. HEPARIN [Concomitant]

REACTIONS (8)
  - ARRHYTHMIA [None]
  - COAGULOPATHY [None]
  - HAEMORRHAGE [None]
  - ISCHAEMIA [None]
  - POST PROCEDURAL HAEMORRHAGE [None]
  - RENAL FAILURE ACUTE [None]
  - RENAL IMPAIRMENT [None]
  - SHOCK [None]
